FAERS Safety Report 8086576-4 (Version None)
Quarter: 2012Q1

REPORT INFORMATION
  Report Type: 
  Country: None (occurrence: None)
  Receive Date: 20120128
  Receipt Date: 20110511
  Transmission Date: 20120608
  Serious: No
  Sender: FDA-Public Use
  Company Number: US-ABBOTT-11P-163-0725180-00

PATIENT
  Sex: Male
  Weight: 79.45 kg

DRUGS (6)
  1. NORVASC [Concomitant]
     Indication: HYPERTENSION
  2. PRADAXA [Concomitant]
     Indication: ATRIAL FIBRILLATION
  3. LIPITOR [Concomitant]
     Indication: BLOOD CHOLESTEROL INCREASED
  4. HUMIRA [Suspect]
     Indication: PSORIASIS
     Dates: start: 20101101
  5. MULTAB [Concomitant]
     Indication: ATRIAL FIBRILLATION
  6. DIOVAN [Concomitant]
     Indication: HYPERTENSION

REACTIONS (1)
  - DRUG INEFFECTIVE [None]
